FAERS Safety Report 23831730 (Version 1)
Quarter: 2024Q2

REPORT INFORMATION
  Report Type: Spontaneous
  Country: US (occurrence: None)
  Receive Date: 20240507
  Receipt Date: 20240507
  Transmission Date: 20240716
  Serious: Yes (Hospitalization)
  Sender: FDA-Public Use
  Company Number: None

PATIENT
  Age: 66 Year
  Sex: Male

DRUGS (2)
  1. SKYRIZI [Suspect]
     Active Substance: RISANKIZUMAB-RZAA
     Indication: Psoriasis
     Dosage: OTHER FREQUENCY : EVERY 12 WEEKS;?
     Route: 048
     Dates: start: 20230131
  2. SKYRIZI 150MG PEN [Concomitant]

REACTIONS (4)
  - Illness [None]
  - Pneumonia [None]
  - Pulmonary embolism [None]
  - Haematological infection [None]

NARRATIVE: CASE EVENT DATE: 20240206
